FAERS Safety Report 6025479-3 (Version None)
Quarter: 2009Q1

REPORT INFORMATION
  Report Type: 
  Country: None (occurrence: None)
  Receive Date: 20081229
  Receipt Date: 20081229
  Transmission Date: 20090719
  Serious: Yes (Other)
  Sender: FDA-Public Use
  Company Number: None

PATIENT
  Age: 87 Year
  Sex: Male
  Weight: 61.2356 kg

DRUGS (2)
  1. RISPERIDONE [Suspect]
     Indication: DEMENTIA
     Dates: start: 20080820, end: 20080921
  2. RISPERIDONE [Suspect]
     Indication: HALLUCINATION
     Dates: start: 20080820, end: 20080921

REACTIONS (10)
  - ABASIA [None]
  - ACTIVITIES OF DAILY LIVING IMPAIRED [None]
  - AMNESIA [None]
  - ANOREXIA [None]
  - ASTHENIA [None]
  - DELUSION [None]
  - DISTURBANCE IN ATTENTION [None]
  - LETHARGY [None]
  - MYOCARDIAL INFARCTION [None]
  - WEIGHT DECREASED [None]
